FAERS Safety Report 8610545-6 (Version None)
Quarter: 2012Q3

REPORT INFORMATION
  Report Type: 
  Country: None (occurrence: None)
  Receive Date: 20120822
  Receipt Date: 20120813
  Transmission Date: 20120928
  Serious: Yes (Hospitalization, Other)
  Sender: FDA-Public Use
  Company Number: FR-JNJFOC-20120707195

PATIENT
  Age: 26 Year
  Sex: Male
  Weight: 65 kg

DRUGS (7)
  1. REMICADE [Suspect]
     Route: 042
     Dates: start: 20101008
  2. REMICADE [Suspect]
     Dosage: 2010 OR 2011
     Route: 042
  3. REMICADE [Suspect]
     Route: 042
     Dates: start: 20100622
  4. REMICADE [Suspect]
     Route: 042
     Dates: start: 20101203
  5. REMICADE [Suspect]
     Dosage: 14TH INFUSION
     Route: 042
     Dates: start: 20120621, end: 20120701
  6. REMICADE [Suspect]
     Indication: CROHN'S DISEASE
     Route: 042
     Dates: start: 20100720
  7. REMICADE [Suspect]
     Route: 042
     Dates: start: 20100608

REACTIONS (2)
  - LYMPH NODE TUBERCULOSIS [None]
  - LUNG DISORDER [None]
